FAERS Safety Report 7534703-7 (Version None)
Quarter: 2011Q2

REPORT INFORMATION
  Report Type: 
  Country: None (occurrence: None)
  Receive Date: 20110609
  Receipt Date: 20110521
  Transmission Date: 20111010
  Serious: Yes (Other)
  Sender: FDA-Public Use
  Company Number: PHHY2011BR44529

PATIENT
  Sex: Female

DRUGS (2)
  1. DIOVAN [Suspect]
     Indication: HYPERTENSION
     Dosage: 80 MG DAILY
     Dates: start: 19940101
  2. EXFORGE [Suspect]
     Indication: HYPERTENSION
     Dosage: 160 MG VALS AND 5 MG AMLO, (1 DF DAILY)
     Dates: start: 19980101

REACTIONS (1)
  - DEAFNESS [None]
